FAERS Safety Report 7820331-2 (Version None)
Quarter: 2011Q4

REPORT INFORMATION
  Report Type: 
  Country: None (occurrence: None)
  Receive Date: 20111018
  Receipt Date: 20111013
  Transmission Date: 20120403
  Serious: Yes (Hospitalization, Congenital Anomaly, Other)
  Sender: FDA-Public Use
  Company Number: US-AMGEN-US182540

PATIENT
  Sex: Male

DRUGS (17)
  1. IRON [Concomitant]
     Dosage: 65 MG, QD
     Route: 064
     Dates: start: 20050815, end: 20060418
  2. LOPERAMIDE HCL [Concomitant]
     Dosage: 4 MG, UNK
     Route: 064
     Dates: start: 20051118, end: 20051119
  3. ETANERCEPT [Suspect]
     Dosage: 50 MG, QWK
     Route: 064
     Dates: start: 20050815, end: 20060418
  4. NAPROXEN [Concomitant]
     Dosage: 500 MG, QD
     Route: 064
     Dates: start: 20050815, end: 20060103
  5. PREDNISONE [Concomitant]
     Dosage: 10 MG, UNK
     Route: 064
     Dates: start: 20050816, end: 20060418
  6. FISH OIL [Concomitant]
     Dosage: UNK
     Route: 064
     Dates: start: 20051206, end: 20060418
  7. INFLUENZA VACCINE [Concomitant]
     Dosage: UNK UNK, UNK
     Route: 064
     Dates: start: 20051107, end: 20051107
  8. RANITIDINE [Concomitant]
     Dosage: 100 MG, QD
     Route: 064
     Dates: start: 20050815, end: 20060418
  9. ASCORBIC ACID [Concomitant]
     Dosage: 500 MG, UNK
     Route: 064
     Dates: start: 20050815, end: 20060418
  10. AMPICILLIN SODIUM [Concomitant]
     Dosage: UNK
     Route: 064
     Dates: start: 20051024, end: 20051031
  11. ASPIRIN [Concomitant]
     Dosage: 81 MG, QD
     Route: 064
     Dates: start: 20050830, end: 20060418
  12. PENICILLIN [Concomitant]
     Dosage: 500 MG, QID
     Route: 064
     Dates: start: 20060125, end: 20060130
  13. TYLENOL-500 [Concomitant]
     Dosage: UNK UNK, QD
     Route: 064
     Dates: start: 20060329, end: 20060331
  14. MULTI-VITAMINS [Concomitant]
     Dosage: UNK UNK, QD
     Route: 064
     Dates: start: 20050815, end: 20060418
  15. CALCIUM WITH VITAMIN D [Concomitant]
     Dosage: UNK UNK, UNK
     Route: 064
     Dates: start: 20051228, end: 20060418
  16. CALCIUM CARBONATE [Concomitant]
     Dosage: UNK UNK, QD
     Route: 064
     Dates: start: 20060329, end: 20060330
  17. BENADRYL [Concomitant]
     Dosage: UNK UNK, QD
     Dates: start: 20060404, end: 20060418

REACTIONS (5)
  - EPISPADIAS [None]
  - TRANSPLANT [None]
  - DEVELOPMENTAL DELAY [None]
  - CONGENITAL EYE DISORDER [None]
  - CONGENITAL GASTRIC ANOMALY [None]
